FAERS Safety Report 5588731-1 (Version None)
Quarter: 2008Q1

REPORT INFORMATION
  Report Type: 
  Country: None (occurrence: None)
  Receive Date: 20080111
  Receipt Date: 20080103
  Transmission Date: 20080703
  Serious: Yes (Other)
  Sender: FDA-Public Use
  Company Number: B0360549A

PATIENT
  Sex: Male

DRUGS (3)
  1. PAROXETINE HYDROCHLORIDE [Suspect]
     Indication: DEPRESSION
     Route: 065
     Dates: start: 20000331
  2. CARBAMAZEPINE [Concomitant]
     Route: 065
  3. DIAZEPAM [Concomitant]
     Route: 065

REACTIONS (23)
  - AGGRESSION [None]
  - AGITATION [None]
  - AMNESIA [None]
  - ANOREXIA [None]
  - ANXIETY [None]
  - CONFUSIONAL STATE [None]
  - DEPRESSION [None]
  - DIARRHOEA [None]
  - DISTURBANCE IN ATTENTION [None]
  - FATIGUE [None]
  - HYPERHIDROSIS [None]
  - INSOMNIA [None]
  - LETHARGY [None]
  - MALAISE [None]
  - NAUSEA [None]
  - NIGHTMARE [None]
  - PANIC ATTACK [None]
  - PHOBIA [None]
  - SLEEP DISORDER [None]
  - SUICIDAL IDEATION [None]
  - TREMOR [None]
  - WEIGHT DECREASED [None]
  - WITHDRAWAL SYNDROME [None]
